FAERS Safety Report 11170343 (Version 1)
Quarter: 2015Q2

REPORT INFORMATION
  Report Type: Spontaneous
  Country: FR (occurrence: FR)
  Receive Date: 20150608
  Receipt Date: 20150608
  Transmission Date: 20150821
  Serious: Yes (Other)
  Sender: FDA-Public Use
  Company Number: FR-ALKEM-001043

PATIENT
  Age: 27 Year
  Sex: Male

DRUGS (6)
  1. MYCOPHENOLIC ACID. [Suspect]
     Active Substance: MYCOPHENOLIC ACID
     Indication: IMMUNOSUPPRESSION
     Dosage: INITIALLY RECEIVED 500 MG/DAY
  2. DOXORUBICIN [Suspect]
     Active Substance: DOXORUBICIN
     Indication: B-CELL LYMPHOMA
     Dosage: EIGHT ROUNDS OF R-CHOP
     Dates: start: 20110225, end: 20110816
  3. PREDNISONE/PREDNISONE ACETATE [Suspect]
     Active Substance: PREDNISONE
     Indication: B-CELL LYMPHOMA
     Dosage: EIGHT ROUNDS OF R-CHOP
     Dates: start: 20110225, end: 20110816
  4. VINCRISTINE [Suspect]
     Active Substance: VINCRISTINE
     Indication: B-CELL LYMPHOMA
     Dosage: EIGHT ROUNDS OF R-CHOP
     Dates: start: 20110225, end: 20110816
  5. RITUXIMAB [Suspect]
     Active Substance: RITUXIMAB
     Indication: B-CELL LYMPHOMA
     Dosage: EIGHT ROUNDS OF R-CHOP
     Dates: start: 20110225, end: 20110816
  6. TACROLIMUS. [Suspect]
     Active Substance: TACROLIMUS
     Indication: IMMUNOSUPPRESSION

REACTIONS (2)
  - B-cell lymphoma [Recovered/Resolved]
  - Smooth muscle cell neoplasm [Not Recovered/Not Resolved]

NARRATIVE: CASE EVENT DATE: 201102
